FAERS Safety Report 21106844 (Version 2)
Quarter: 2022Q3

REPORT INFORMATION
  Report Type: Spontaneous
  Country: US (occurrence: None)
  Receive Date: 20220720
  Receipt Date: 20220728
  Transmission Date: 20221027
  Serious: Yes (Hospitalization)
  Sender: FDA-Public Use
  Company Number: 2022A254373

PATIENT
  Age: 50 Year
  Sex: Female

DRUGS (8)
  1. FARXIGA [Suspect]
     Active Substance: DAPAGLIFLOZIN PROPANEDIOL
     Indication: Chronic kidney disease
     Route: 048
     Dates: start: 20220309, end: 202204
  2. LASIX [Concomitant]
     Active Substance: FUROSEMIDE
     Indication: Cardiac failure
     Route: 048
  3. BRILINTA [Concomitant]
     Active Substance: TICAGRELOR
     Route: 048
  4. LINZESS [Concomitant]
     Active Substance: LINACLOTIDE
  5. INSULIN NOS [Concomitant]
     Active Substance: INSULIN NOS
  6. IRBESARTAN [Concomitant]
     Active Substance: IRBESARTAN
  7. ATORVASTATIN [Concomitant]
     Active Substance: ATORVASTATIN
  8. OZEMPIC [Concomitant]
     Active Substance: SEMAGLUTIDE

REACTIONS (1)
  - Acute kidney injury [Recovered/Resolved]

NARRATIVE: CASE EVENT DATE: 20220401
